FAERS Safety Report 4357737-2 (Version None)
Quarter: 2004Q2

REPORT INFORMATION
  Report Type: 
  Country: None (occurrence: None)
  Receive Date: 20040510
  Receipt Date: 20040416
  Transmission Date: 20050107
  Serious: Yes (Hospitalization)
  Sender: FDA-Public Use
  Company Number: 2004211940FR

PATIENT
  Age: 84 Year
  Sex: Male

DRUGS (9)
  1. TRELSTAR DEPOT [Suspect]
     Dosage: 3 MG, 1/28 DAYS, INTRAMUSCULAR
     Route: 030
  2. DOLIPRANE [Concomitant]
  3. ATHYMIL [Concomitant]
  4. LASIX [Concomitant]
  5. SOTALOL HCL [Concomitant]
  6. RAMIPIRIL (RAMIPIRIL) [Concomitant]
  7. ASASANTIN [Concomitant]
  8. VASTAREL (TRIMETAZIDINE HYDROCHLORIDE) [Concomitant]
  9. TRINIPATCH [Concomitant]

REACTIONS (4)
  - BLOOD FOLATE INCREASED [None]
  - GASTRIC POLYPS [None]
  - HAEMOLYTIC ANAEMIA [None]
  - VITAMIN B12 DECREASED [None]
